FAERS Safety Report 8374928-4 (Version None)
Quarter: 2012Q2

REPORT INFORMATION
  Report Type: 
  Country: None (occurrence: None)
  Receive Date: 20120521
  Receipt Date: 20120508
  Transmission Date: 20120825
  Serious: Yes (Hospitalization)
  Sender: FDA-Public Use
  Company Number: US-ROCHE-1066806

PATIENT
  Age: 49 Year
  Sex: Male
  Weight: 69.008 kg

DRUGS (8)
  1. PEGASYS [Suspect]
     Indication: HEPATITIS C
     Dates: start: 20120213, end: 20120304
  2. PRILOSEC [Concomitant]
  3. PEGASYS [Suspect]
     Dates: start: 20120305, end: 20120416
  4. CETIRIZINE [Concomitant]
     Dates: start: 20120201
  5. TELAPREVIR [Suspect]
     Indication: HEPATITIS C
     Route: 048
     Dates: start: 20120213, end: 20120330
  6. COPEGUS [Suspect]
     Route: 048
     Dates: start: 20120404, end: 20120416
  7. COPEGUS [Suspect]
     Indication: HEPATITIS C
     Route: 048
     Dates: start: 20120213, end: 20120325
  8. COPEGUS [Suspect]
     Route: 048
     Dates: start: 20120326, end: 20120403

REACTIONS (2)
  - RASH ERYTHEMATOUS [None]
  - DRUG RASH WITH EOSINOPHILIA AND SYSTEMIC SYMPTOMS [None]
